FAERS Safety Report 24678302 (Version 1)
Quarter: 2024Q4

REPORT INFORMATION
  Report Type: Spontaneous
  Country: US (occurrence: US)
  Receive Date: 20241129
  Receipt Date: 20241129
  Transmission Date: 20250115
  Serious: Yes (Other)
  Sender: DR REDDYS
  Company Number: None

PATIENT
  Age: 71 Year
  Sex: Female

DRUGS (8)
  1. TOBRAMYCIN [Suspect]
     Active Substance: TOBRAMYCIN\TOBRAMYCIN SULFATE
     Indication: Device related infection
     Dosage: SPACER/HIGHER DOSES AND LONGER DURATION
  2. TOBRAMYCIN [Suspect]
     Active Substance: TOBRAMYCIN\TOBRAMYCIN SULFATE
     Indication: Arthritis infective
  3. AMPICILLIN [Suspect]
     Active Substance: AMPICILLIN
     Indication: Device related infection
  4. AMPICILLIN [Suspect]
     Active Substance: AMPICILLIN
     Indication: Arthritis infective
  5. AMPICILLIN [Suspect]
     Active Substance: AMPICILLIN
     Indication: Septic shock
  6. VANCOMYCIN [Concomitant]
     Active Substance: VANCOMYCIN
     Indication: Device related infection
     Dosage: SPACER
  7. VANCOMYCIN [Concomitant]
     Active Substance: VANCOMYCIN
     Indication: Arthritis infective
  8. PREDNISONE [Concomitant]
     Active Substance: PREDNISONE
     Indication: Rheumatoid arthritis
     Dosage: REDUCED

REACTIONS (5)
  - Renal tubular injury [Recovered/Resolved]
  - Tubulointerstitial nephritis [Recovered/Resolved]
  - Glomerulonephritis membranoproliferative [Recovered/Resolved]
  - Acute kidney injury [Recovered/Resolved]
  - Renal failure [Recovered/Resolved]
